FAERS Safety Report 6549192-9 (Version None)
Quarter: 2010Q1

REPORT INFORMATION
  Report Type: 
  Country: None (occurrence: None)
  Receive Date: 20100125
  Receipt Date: 20100120
  Transmission Date: 20100710
  Serious: Yes (Death, Hospitalization)
  Sender: FDA-Public Use
  Company Number: CA-SANOFI-AVENTIS-2010SA000422

PATIENT
  Age: 58 Year
  Sex: Female
  Weight: 119 kg

DRUGS (8)
  1. DOCETAXEL [Suspect]
     Route: 042
     Dates: start: 20090707, end: 20090707
  2. DOCETAXEL [Suspect]
     Route: 042
     Dates: start: 20090213, end: 20090213
  3. BLINDED THERAPY [Suspect]
     Route: 042
     Dates: start: 20090213, end: 20090707
  4. SPIRONOLACTONE [Concomitant]
     Dates: start: 20090910
  5. MORPHINE [Concomitant]
     Dates: start: 20090904
  6. LASIX [Concomitant]
     Dates: start: 20090916
  7. MAXERAN [Concomitant]
     Dates: start: 20090904
  8. GRAVOL TAB [Concomitant]
     Dates: start: 20090904

REACTIONS (10)
  - DELIRIUM [None]
  - HEPATIC ENCEPHALOPATHY [None]
  - HEPATIC FAILURE [None]
  - HEPATIC STEATOSIS [None]
  - HEPATOSPLENOMEGALY [None]
  - METASTASES TO BONE [None]
  - METASTASES TO LIVER [None]
  - PNEUMONIA [None]
  - PORTAL HYPERTENSION [None]
  - URINARY TRACT INFECTION [None]
